FAERS Safety Report 11852447 (Version 3)
Quarter: 2016Q1

REPORT INFORMATION
  Report Type: Spontaneous
  Country: US (occurrence: US)
  Receive Date: 20151218
  Receipt Date: 20160209
  Transmission Date: 20160526
  Serious: No
  Sender: FDA-Public Use
  Company Number: US-PFIZER INC-2015431925

PATIENT
  Age: 37 Year
  Sex: Male

DRUGS (6)
  1. NEURONTIN [Interacting]
     Active Substance: GABAPENTIN
     Indication: MENTAL DISORDER
     Dosage: 800 MG, 2X/DAY
     Dates: start: 2008
  2. CLONAZEPAM. [Interacting]
     Active Substance: CLONAZEPAM
     Indication: ANXIETY
     Dosage: 1 MG, 3X/DAY
     Dates: start: 2009
  3. NEURONTIN [Interacting]
     Active Substance: GABAPENTIN
     Indication: DEPRESSION
  4. CLONAZEPAM. [Interacting]
     Active Substance: CLONAZEPAM
     Indication: SOCIAL PROBLEM
  5. NEURONTIN [Suspect]
     Active Substance: GABAPENTIN
     Indication: ANXIETY
     Dosage: UNK UNK, 2X/DAY
     Dates: start: 2002
  6. NEURONTIN [Interacting]
     Active Substance: GABAPENTIN
     Indication: OBSESSIVE-COMPULSIVE DISORDER

REACTIONS (2)
  - Drug ineffective for unapproved indication [Unknown]
  - Potentiating drug interaction [Unknown]
